FAERS Safety Report 18544519 (Version 1)
Quarter: 2020Q4

REPORT INFORMATION
  Report Type: Spontaneous
  Country: US (occurrence: US)
  Receive Date: 20201125
  Receipt Date: 20201125
  Transmission Date: 20210114
  Serious: No
  Sender: FDA-Public Use
  Company Number: US-BAYER-2020-255633

PATIENT

DRUGS (2)
  1. MIRALAX [Suspect]
     Active Substance: POLYETHYLENE GLYCOL 3350
     Indication: ANAL FISSURE
     Dosage: UNK
     Route: 048
  2. DOCUSATE [Suspect]
     Active Substance: DOCUSATE
     Dosage: UNK

REACTIONS (2)
  - Product use in unapproved indication [None]
  - Product use issue [Unknown]
